FAERS Safety Report 5632644-3 (Version None)
Quarter: 2008Q1

REPORT INFORMATION
  Report Type: 
  Country: None (occurrence: None)
  Receive Date: 20080219
  Receipt Date: 20080204
  Transmission Date: 20080703
  Serious: Yes (Hospitalization)
  Sender: FDA-Public Use
  Company Number: 2008BI002927

PATIENT
  Age: 17 Year
  Sex: Female
  Weight: 72.5755 kg

DRUGS (3)
  1. AVONEX [Suspect]
     Indication: MULTIPLE SCLEROSIS
     Dosage: 30 UG;QW;IM
     Route: 030
     Dates: start: 20070913, end: 20071001
  2. TYLENOL (CAPLET) [Concomitant]
  3. IBUPROFEN [Concomitant]

REACTIONS (1)
  - RENAL FAILURE [None]
